FAERS Safety Report 5427698-3 (Version None)
Quarter: 2007Q3

REPORT INFORMATION
  Report Type: 
  Country: None (occurrence: None)
  Receive Date: 20070823
  Receipt Date: 20070814
  Transmission Date: 20080115
  Serious: Yes (Other)
  Sender: FDA-Public Use
  Company Number: 2007EU001806

PATIENT
  Age: 76 Year
  Sex: Female

DRUGS (3)
  1. SOLIFENACIN(SOLIFENACIN) TABLET, 5MG [Suspect]
     Dosage: 5 MG, UID/QD, ORAL
     Route: 048
  2. OMEPRAZOLE(OMEPRAZOLE) FORMULATION UNKNOWN, UNKNOWN [Suspect]
     Dosage: 20 MG, UID/QD, ORAL
     Route: 048
  3. DICLOFENAC (DICLOFENAC) [Concomitant]

REACTIONS (1)
  - NEPHRITIS INTERSTITIAL [None]
